FAERS Safety Report 9015769 (Version 1)
Quarter: 2013Q1

REPORT INFORMATION
  Report Type: Spontaneous
  Country: GB (occurrence: None)
  Receive Date: 20130103
  Receipt Date: 20130103
  Transmission Date: 20140127
  Serious: Yes (Other)
  Sender: FDA-Public Use
  Company Number: AUR-APL-2012-05540

PATIENT
  Sex: Male

DRUGS (2)
  1. QUETIAPINE (QUETIAPINE) (QUETIAPINE) [Suspect]
     Indication: PRODUCT USED FOR UNKNOWN INDICATION
     Dates: start: 20120627
  2. LITHIUM (LITHIUM) UNKNOWN [Concomitant]
     Indication: PRODUCT USED FOR UNKNOWN INDICATION

REACTIONS (7)
  - Sedation [None]
  - Anhedonia [None]
  - Feeling abnormal [None]
  - Tardive dyskinesia [None]
  - Erectile dysfunction [None]
  - Bruxism [None]
  - Impatience [None]
